FAERS Safety Report 9378115 (Version 2)
Quarter: 2013Q3

REPORT INFORMATION
  Report Type: Report from Study
  Country: US (occurrence: US)
  Receive Date: 20130701
  Receipt Date: 20130703
  Transmission Date: 20140515
  Serious: Yes (Death, Life-Threatening, Hospitalization, Disabling)
  Sender: FDA-Public Use
  Company Number: US-GLAXOSMITHKLINE-B0886991B

PATIENT
  Age: 60 Year
  Sex: Male
  Weight: 123 kg

DRUGS (13)
  1. FLUTICASONE FUROATE [Suspect]
     Indication: CHRONIC OBSTRUCTIVE PULMONARY DISEASE
  2. KCL [Concomitant]
     Indication: BLOOD PRESSURE
     Dosage: 120MG PER DAY
     Route: 048
  3. KCL [Concomitant]
     Indication: BLOOD POTASSIUM
  4. VITAMIN C [Concomitant]
     Indication: MEDICAL DIET
     Route: 048
  5. ASPIRIN [Concomitant]
     Indication: CARDIOVASCULAR EVENT PROPHYLAXIS
     Dosage: 81MG PER DAY
     Route: 048
  6. DILTIAZEM [Concomitant]
     Indication: HYPERTENSION
     Dosage: 180MG PER DAY
     Route: 048
  7. DILTIAZEM [Concomitant]
     Indication: ARRHYTHMIA
  8. PRAMIPEXOLE [Concomitant]
     Indication: RESTLESS LEGS SYNDROME
     Dosage: .25MG PER DAY
     Route: 048
  9. PANTOPRAZOLE [Concomitant]
     Indication: GASTRIC HAEMORRHAGE
     Dosage: 40MG TWICE PER DAY
     Route: 048
  10. FUROSEMIDE [Concomitant]
     Indication: DIURETIC THERAPY
     Dosage: 20MG PER DAY
     Route: 048
  11. VITAMIN B [Concomitant]
     Indication: MEDICAL DIET
     Dosage: 100MG PER DAY
     Route: 048
  12. LOVASTATIN [Concomitant]
     Indication: BLOOD CHOLESTEROL
     Dosage: 20MG PER DAY
     Route: 048
  13. LEVOTHYROXINE [Concomitant]
     Indication: PRODUCT USED FOR UNKNOWN INDICATION
     Dosage: 5MCG TWICE PER DAY
     Route: 048

REACTIONS (1)
  - Death [Fatal]
